FAERS Safety Report 8276172-8 (Version None)
Quarter: 2012Q2

REPORT INFORMATION
  Report Type: 
  Country: None (occurrence: None)
  Receive Date: 20120405
  Receipt Date: 20120323
  Transmission Date: 20120825
  Serious: Yes (Hospitalization)
  Sender: FDA-Public Use
  Company Number: DSA_55865_2012

PATIENT
  Age: 23 Year
  Sex: Male

DRUGS (6)
  1. FLAGYL [Suspect]
     Indication: TOOTH ABSCESS
     Dosage: (1 DF 1X ORAL)
     Route: 048
     Dates: start: 20120130, end: 20120130
  2. XYLOCAINE [Concomitant]
  3. ACETAMINOPHEN [Concomitant]
  4. CODEINE PHOSPHATE AND ACETAMINOPHEN [Suspect]
     Indication: TOOTH ABSCESS
     Dosage: (1 DF 1X ORAL)
     Route: 048
     Dates: start: 20120130, end: 20120130
  5. IBUPROFEN [Concomitant]
  6. AMOXICILLIN [Suspect]
     Indication: TOOTH ABSCESS
     Dosage: (1 DF 1X)
     Dates: start: 20120130, end: 20120130

REACTIONS (4)
  - ABDOMINAL PAIN UPPER [None]
  - VOMITING [None]
  - HYPERHIDROSIS [None]
  - SELF-MEDICATION [None]
